FAERS Safety Report 8117751-8 (Version None)
Quarter: 2011Q4

REPORT INFORMATION
  Report Type: 
  Country: None (occurrence: None)
  Receive Date: 20111227
  Receipt Date: 20101207
  Transmission Date: 20120403
  Serious: Yes (Disabling, Other)
  Sender: FDA-Public Use
  Company Number: PHHY2010US80056

PATIENT
  Sex: Female

DRUGS (5)
  1. FEMARA [Suspect]
     Indication: BREAST CANCER
     Dosage: 2.5 MG, DAILY, ORAL
     Route: 048
     Dates: start: 20100904, end: 20101011
  2. VITAMINS (NO INGREDIENTS/SUBSTANCES) [Concomitant]
  3. MAGNESIUM (MAGNESIUM) [Concomitant]
  4. MAXZIDE [Concomitant]
  5. ADVIL (MEFENAMIC ACID) [Concomitant]

REACTIONS (2)
  - ARTHRALGIA [None]
  - PAIN IN EXTREMITY [None]
